FAERS Safety Report 5456151-6 (Version None)
Quarter: 2007Q3

REPORT INFORMATION
  Report Type: 
  Country: None (occurrence: None)
  Receive Date: 20070918
  Receipt Date: 20070702
  Transmission Date: 20080115
  Serious: Yes (Other)
  Sender: FDA-Public Use
  Company Number: US-ASTRAZENECA-2006UW23048

PATIENT
  Sex: Male
  Weight: 57.7 kg

DRUGS (9)
  1. SEROQUEL [Suspect]
     Indication: DEPRESSION
     Route: 048
  2. SEROQUEL [Suspect]
     Indication: ANXIETY
     Route: 048
  3. SEROQUEL [Suspect]
     Indication: INSOMNIA
     Route: 048
  4. ARIPIPRAZOLE [Concomitant]
  5. RISPERIDONE [Concomitant]
     Dates: start: 20010713
  6. OLANZAPINE [Concomitant]
     Dates: start: 20010713
  7. DEPAKOTE [Concomitant]
  8. STRATTERA [Concomitant]
     Dates: start: 20040101
  9. CLONAZEPAM [Concomitant]
     Dates: start: 20050321

REACTIONS (1)
  - PANCREATITIS [None]
